FAERS Safety Report 5312834-X (Version None)
Quarter: 2007Q1

REPORT INFORMATION
  Report Type: 
  Country: None (occurrence: None)
  Receive Date: 20070201
  Receipt Date: 20061207
  Transmission Date: 20070707
  Serious: No
  Sender: FDA-Public Use
  Company Number: 259109

PATIENT
  Age: 65 Year
  Sex: Female
  Weight: 103.4 kg

DRUGS (4)
  1. LEVEMIR [Suspect]
     Indication: INSULIN-REQUIRING TYPE II DIABETES MELLITUS
     Dosage: 100 IU, QD, SUBCUTANEOUS
     Route: 058
     Dates: start: 20061101, end: 20061101
  2. NOVOLOG [Concomitant]
  3. LANTUS [Concomitant]
  4. AVANDIA [Concomitant]

REACTIONS (1)
  - URTICARIA [None]
